FAERS Safety Report 5612388-4 (Version None)
Quarter: 2008Q1

REPORT INFORMATION
  Report Type: 
  Country: None (occurrence: None)
  Receive Date: 20080204
  Receipt Date: 20080123
  Transmission Date: 20080703
  Serious: Yes (Hospitalization, Disabling, Other)
  Sender: FDA-Public Use
  Company Number: US-MERCK-0706USA02018

PATIENT
  Age: 35 Year
  Sex: Female

DRUGS (7)
  1. FOSAMAX [Suspect]
     Indication: OSTEOPOROSIS
     Route: 048
     Dates: start: 20011001, end: 20060101
  2. FOSAMAX [Suspect]
     Indication: OSTEOPENIA
     Route: 048
     Dates: start: 20011001, end: 20060101
  3. TOPAMAX [Concomitant]
     Indication: CONVULSION
     Route: 065
  4. NEURONTIN [Concomitant]
     Indication: CONVULSION
     Route: 065
  5. VICODIN [Concomitant]
     Indication: PAIN
     Route: 065
  6. PROMETHAZINE [Concomitant]
     Indication: PROPHYLAXIS OF NAUSEA AND VOMITING
     Route: 065
  7. PROMETHAZINE [Concomitant]
     Indication: MOTION SICKNESS
     Route: 065

REACTIONS (8)
  - ANKLE FRACTURE [None]
  - DEAFNESS [None]
  - FOOT FRACTURE [None]
  - NEPHROLITHIASIS [None]
  - OSTEOCHONDROSIS [None]
  - PAIN IN JAW [None]
  - TEMPOROMANDIBULAR JOINT SYNDROME [None]
  - TOOTH LOSS [None]
